FAERS Safety Report 7743625-8 (Version None)
Quarter: 2011Q3

REPORT INFORMATION
  Report Type: 
  Country: None (occurrence: None)
  Receive Date: 20110909
  Receipt Date: 20110909
  Transmission Date: 20111222
  Serious: Yes (Other)
  Sender: FDA-Public Use
  Company Number: None

PATIENT
  Sex: Female
  Weight: 103.4201 kg

DRUGS (1)
  1. STRATTERA [Suspect]
     Dosage: 100 M/G. 3X DAILY ORAL
     Route: 048

REACTIONS (2)
  - SOMNAMBULISM [None]
  - PAIN [None]
